FAERS Safety Report 9880668 (Version 1)
Quarter: 2014Q1

REPORT INFORMATION
  Report Type: Spontaneous
  Country: FR (occurrence: FR)
  Receive Date: 20140207
  Receipt Date: 20140207
  Transmission Date: 20141002
  Serious: Yes (Other)
  Sender: FDA-Public Use
  Company Number: FR-ASTRAZENECA-2014SE07130

PATIENT
  Age: 45 Year
  Sex: Female

DRUGS (7)
  1. XEROQUEL [Suspect]
     Indication: BIPOLAR DISORDER
     Route: 048
     Dates: start: 20130501, end: 201306
  2. LEVOTHYROX [Concomitant]
     Route: 048
  3. BIPROFENID [Concomitant]
     Route: 048
  4. PULMICORT [Concomitant]
     Route: 055
  5. IXPRIM [Concomitant]
     Indication: PAIN
     Route: 048
  6. CETIRIZINE [Concomitant]
     Route: 048
  7. UNSPECIFIED BETA-2-MIMETIC [Concomitant]

REACTIONS (5)
  - Hypomania [Recovered/Resolved]
  - Paraesthesia [Recovered/Resolved]
  - Aggression [Unknown]
  - Tachycardia [Recovered/Resolved]
  - Hypotension [Recovered/Resolved]
